FAERS Safety Report 6674436-2 (Version None)
Quarter: 2010Q2

REPORT INFORMATION
  Report Type: 
  Country: None (occurrence: None)
  Receive Date: 20100409
  Receipt Date: 20100331
  Transmission Date: 20101027
  Serious: Yes (Other)
  Sender: FDA-Public Use
  Company Number: PHHY2010US20461

PATIENT
  Sex: Female

DRUGS (6)
  1. EXFORGE [Suspect]
     Dosage: 160/5 MG
  2. EXFORGE [Suspect]
     Dosage: 160/10 MG
  3. SIMVASTATIN [Suspect]
  4. SYNTHROID [Concomitant]
  5. GLIPIZIDE [Concomitant]
  6. WHEAT GERM [Concomitant]

REACTIONS (4)
  - BONE SWELLING [None]
  - JOINT SWELLING [None]
  - MUSCULOSKELETAL PAIN [None]
  - MYALGIA [None]
